FAERS Safety Report 4375015-2 (Version None)
Quarter: 2004Q2

REPORT INFORMATION
  Report Type: 
  Country: None (occurrence: None)
  Receive Date: 20040604
  Receipt Date: 20040528
  Transmission Date: 20050107
  Serious: Yes (Hospitalization, Other)
  Sender: FDA-Public Use
  Company Number: FRWYE791401JUN04

PATIENT
  Age: 84 Year
  Sex: Female

DRUGS (2)
  1. OXAZEPAM [Suspect]
     Indication: DEPRESSION
     Dosage: ORAL
     Route: 048
     Dates: end: 20040108
  2. ATARAX [Suspect]
     Indication: ANXIETY
     Dosage: ORAL
     Route: 048
     Dates: end: 20040108

REACTIONS (4)
  - PNEUMONIA [None]
  - RESPIRATORY ACIDOSIS [None]
  - RESPIRATORY DEPRESSION [None]
  - TREATMENT NONCOMPLIANCE [None]
